FAERS Safety Report 4497113-5 (Version None)
Quarter: 2004Q4

REPORT INFORMATION
  Report Type: 
  Country: None (occurrence: None)
  Receive Date: 20041110
  Receipt Date: 20030324
  Transmission Date: 20050328
  Serious: Yes (Death, Hospitalization)
  Sender: FDA-Public Use
  Company Number: US-BRISTOL-MYERS SQUIBB COMPANY-12212775

PATIENT
  Age: 65 Year
  Sex: Male
  Weight: 78 kg

DRUGS (14)
  1. CISPLATIN [Suspect]
     Indication: OROPHARYNGEAL CANCER STAGE UNSPECIFIED
     Route: 042
     Dates: start: 20000516, end: 20000614
  2. CETUXIMAB [Suspect]
     Indication: OROPHARYNGEAL CANCER STAGE UNSPECIFIED
     Dosage: 16 MAY 2000: 808 MG LOADING DOSE
     Route: 042
     Dates: start: 20000516, end: 20000614
  3. RADIATION THERAPY [Suspect]
     Indication: OROPHARYNGEAL CANCER STAGE UNSPECIFIED
     Dosage: 4140 GY UPPER NECK 4600 GY LOWER NECK
     Dates: start: 20000316, end: 20000616
  4. DECADRON [Concomitant]
     Dates: start: 20000520, end: 20000521
  5. PAXIL [Concomitant]
     Dosage: AT BEDTIME
     Route: 048
  6. MYCELEX [Concomitant]
     Route: 048
  7. REGLAN [Concomitant]
  8. ZYPREXA [Concomitant]
     Route: 048
  9. ROBITUSSIN [Concomitant]
     Dosage: EVERY 6 HOURS
  10. OXYCODONE HCL [Concomitant]
     Dosage: 5-10 MG
  11. AMBIEN [Concomitant]
  12. COLACE [Concomitant]
     Dates: start: 20000614, end: 20000616
  13. SENOKOT [Concomitant]
     Dates: start: 20000614, end: 20000616
  14. TOBRAMYCIN [Concomitant]
     Dates: start: 20000616

REACTIONS (5)
  - BRONCHOPNEUMONIA [None]
  - DEHYDRATION [None]
  - FAILURE TO THRIVE [None]
  - HYPERGLYCAEMIA [None]
  - OROPHARYNGEAL CANCER STAGE UNSPECIFIED [None]
